FAERS Safety Report 11170286 (Version 4)
Quarter: 2017Q4

REPORT INFORMATION
  Report Type: Report from Study
  Country: BR (occurrence: BR)
  Receive Date: 20150608
  Receipt Date: 20171220
  Transmission Date: 20180320
  Serious: Yes (Hospitalization, Other)
  Sender: FDA-Public Use
  Company Number: PHHY2015BR065584

PATIENT
  Sex: Female
  Weight: 16 kg

DRUGS (4)
  1. CEPHALEXIN. [Concomitant]
     Active Substance: CEPHALEXIN
     Indication: INFECTION
     Dosage: 6 ML, QD
     Route: 065
     Dates: start: 2013
  2. ILARIS [Suspect]
     Active Substance: CANAKINUMAB
     Indication: AUTOINFLAMMATORY DISEASE
     Dosage: 150 MG, (ONE AMPULE PER MONTH)
     Route: 042
     Dates: start: 201410, end: 201410
  3. ILARIS [Suspect]
     Active Substance: CANAKINUMAB
     Indication: DERMATITIS
  4. BEESWAX\CETYL ESTERS WAX\PARAFFIN\SODIUM BORATE [Concomitant]
     Active Substance: CETYL ESTERS WAX\PARAFFIN\SODIUM BORATE\YELLOW WAX
     Indication: DRY SKIN
     Dosage: UNK
     Route: 065
     Dates: start: 201109

REACTIONS (13)
  - Arthritis bacterial [Unknown]
  - Lung infection [Unknown]
  - Abdominal pain [Not Recovered/Not Resolved]
  - Dyspnoea [Unknown]
  - Skin infection [Recovering/Resolving]
  - Autoinflammatory disease [Unknown]
  - Pyrexia [Not Recovered/Not Resolved]
  - Crohn^s disease [Unknown]
  - Sarcoidosis [Unknown]
  - Vomiting [Not Recovered/Not Resolved]
  - Ichthyosis [Unknown]
  - Fatigue [Recovered/Resolved]
  - Cough [Recovered/Resolved]
